FAERS Safety Report 6753819-6 (Version None)
Quarter: 2010Q2

REPORT INFORMATION
  Report Type: 
  Country: None (occurrence: None)
  Receive Date: 20100601
  Receipt Date: 20100521
  Transmission Date: 20101027
  Serious: Yes (Other)
  Sender: FDA-Public Use
  Company Number: 2010SP029566

PATIENT
  Age: 35 Year
  Sex: Female

DRUGS (1)
  1. DESOGESTREL AND ETHINYL ESTRADIOL [Suspect]
     Indication: CONTRACEPTION
     Dosage: 1 DF; PO
     Route: 048

REACTIONS (3)
  - CHOLELITHIASIS [None]
  - JAUNDICE CHOLESTATIC [None]
  - LETHARGY [None]
